FAERS Safety Report 14002609 (Version 1)
Quarter: 2017Q3

REPORT INFORMATION
  Report Type: Spontaneous
  Country: AU (occurrence: AU)
  Receive Date: 20170922
  Receipt Date: 20170922
  Transmission Date: 20171128
  Serious: Yes (Other)
  Sender: FDA-Public Use
  Company Number: AU-IBIGEN-2017.03015

PATIENT
  Age: 99 Year
  Sex: Male

DRUGS (4)
  1. DOXYCYCLINE. [Concomitant]
     Active Substance: DOXYCYCLINE
  2. VANCOMYCIN [Suspect]
     Active Substance: VANCOMYCIN
     Indication: PYREXIA
  3. MEROPENEM. [Concomitant]
     Active Substance: MEROPENEM
  4. PIPERACILLIN AND TAZOBACTAM [Suspect]
     Active Substance: PIPERACILLIN SODIUM\TAZOBACTAM SODIUM
     Indication: PYREXIA
     Dates: start: 20170623, end: 20170629

REACTIONS (1)
  - Renal impairment [Not Recovered/Not Resolved]

NARRATIVE: CASE EVENT DATE: 20170628
